FAERS Safety Report 7391620-3 (Version None)
Quarter: 2011Q2

REPORT INFORMATION
  Report Type: 
  Country: None (occurrence: None)
  Receive Date: 20110404
  Receipt Date: 20110308
  Transmission Date: 20111010
  Serious: No
  Sender: FDA-Public Use
  Company Number: US-B.I. PHARMACEUTICALS,INC./RIDGEFIELD-2011-BP-07397BP

PATIENT
  Age: 79 Year
  Sex: Male

DRUGS (6)
  1. ASPIRIN [Concomitant]
     Indication: CARDIAC DISORDER
     Dosage: 81 MG
     Route: 048
     Dates: start: 20110120
  2. DIGOXIN [Concomitant]
     Indication: CARDIAC DISORDER
     Route: 048
     Dates: end: 20110201
  3. SIMVASTATIN [Concomitant]
     Indication: CARDIAC DISORDER
     Route: 048
     Dates: end: 20110201
  4. ZOCOR [Concomitant]
     Indication: CARDIAC DISORDER
     Route: 048
     Dates: end: 20110201
  5. COREG [Suspect]
     Indication: CARDIAC DISORDER
     Route: 048
     Dates: start: 20110120
  6. PRADAXA [Suspect]
     Indication: ATRIAL FIBRILLATION
     Dosage: 300 MG
     Route: 048
     Dates: start: 20110120

REACTIONS (1)
  - ORAL HERPES [None]
